FAERS Safety Report 8353649-8 (Version None)
Quarter: 2012Q2

REPORT INFORMATION
  Report Type: 
  Country: None (occurrence: None)
  Receive Date: 20120511
  Receipt Date: 20120502
  Transmission Date: 20120825
  Serious: Yes (Hospitalization)
  Sender: FDA-Public Use
  Company Number: BR-ASTRAZENECA-2012SE28732

PATIENT
  Age: 51 Year
  Sex: Female
  Weight: 58.5 kg

DRUGS (6)
  1. SYNTHROID [Concomitant]
     Indication: HYPERTHYROIDISM
  2. NEXIUM [Suspect]
     Indication: GASTRITIS PROPHYLAXIS
     Route: 048
     Dates: start: 20120101, end: 20120301
  3. CRESTOR [Suspect]
     Indication: BLOOD CHOLESTEROL INCREASED
     Route: 048
  4. BROMAZEPAM [Concomitant]
     Indication: INSOMNIA
  5. FORMOTEROL FUMARATE [Concomitant]
     Indication: COUGH
  6. NEXIUM [Suspect]
     Route: 048
     Dates: start: 20120301

REACTIONS (3)
  - PULMONARY EMBOLISM [None]
  - VOMITING [None]
  - NAUSEA [None]
